FAERS Safety Report 8852820 (Version 1)
Quarter: 2012Q4

REPORT INFORMATION
  Report Type: 
  Country: AU (occurrence: AU)
  Receive Date: 20121022
  Receipt Date: 20121022
  Transmission Date: 20130627
  Serious: Yes (Other)
  Sender: FDA-Public Use
  Company Number: PHHY2012AU093672

PATIENT
  Sex: Female

DRUGS (9)
  1. TEGRETOL [Suspect]
     Dosage: UNK UKN, UNK
  2. ACICLOVIR [Suspect]
  3. NITRAZEPAM [Suspect]
  4. CELEBREX [Suspect]
  5. ZUCLOPENTHIXOL [Suspect]
  6. PANADOL [Suspect]
  7. METOCLOPRAMIDE [Suspect]
  8. SERETIDE [Suspect]
  9. VYTORIN [Suspect]

REACTIONS (5)
  - Cough [Unknown]
  - Dyspnoea [Unknown]
  - Incontinence [Unknown]
  - Nasal congestion [Unknown]
  - Retching [Unknown]
